FAERS Safety Report 8922895 (Version 1)
Quarter: 2012Q4

REPORT INFORMATION
  Report Type: 
  Country: ES (occurrence: ES)
  Receive Date: 20121123
  Receipt Date: 20121123
  Transmission Date: 20130627
  Serious: Yes (Other)
  Sender: FDA-Public Use
  Company Number: ES-PFIZER INC-2012264975

PATIENT
  Age: 72 Year
  Sex: Male

DRUGS (1)
  1. LINEZOLID [Suspect]
     Indication: PNEUMONIA
     Dosage: UNK

REACTIONS (1)
  - Pathogen resistance [Unknown]
